FAERS Safety Report 10058122 (Version 2)
Quarter: 2014Q2

REPORT INFORMATION
  Report Type: Spontaneous
  Country: US (occurrence: US)
  Receive Date: 20140404
  Receipt Date: 20140506
  Transmission Date: 20141212
  Serious: No
  Sender: FDA-Public Use
  Company Number: US-PFIZER INC-2014091920

PATIENT
  Sex: Female

DRUGS (7)
  1. LYRICA [Suspect]
     Dosage: UNK
  2. ACCURETIC [Suspect]
     Dosage: UNK
  3. METHOCARBAMOL [Suspect]
     Dosage: UNK
  4. TRAMADOL HYDROCHLORIDE [Suspect]
     Dosage: UNK
  5. TRAZODONE HYDROCHLORIDE [Suspect]
     Dosage: UNK
  6. REQUIP [Suspect]
     Dosage: UNK
  7. CODEINE [Suspect]
     Dosage: UNK

REACTIONS (1)
  - Drug hypersensitivity [Unknown]
